FAERS Safety Report 8553561-5 (Version None)
Quarter: 2012Q3

REPORT INFORMATION
  Report Type: 
  Country: None (occurrence: None)
  Receive Date: 20120731
  Receipt Date: 20120725
  Transmission Date: 20120928
  Serious: No
  Sender: FDA-Public Use
  Company Number: US-PFIZER INC-2012180678

PATIENT
  Age: 52 Year
  Sex: Male

DRUGS (2)
  1. PLAVIX [Interacting]
     Dosage: 75 MG, UNK
     Route: 048
     Dates: start: 20110118
  2. SERTRALINE HYDROCHLORIDE [Suspect]
     Indication: DEPRESSION
     Dosage: UNK
     Dates: start: 20120201

REACTIONS (2)
  - TINEA INFECTION [None]
  - DRUG INTERACTION [None]
